FAERS Safety Report 5895089-7 (Version None)
Quarter: 2008Q3

REPORT INFORMATION
  Report Type: 
  Country: None (occurrence: None)
  Receive Date: 20080922
  Receipt Date: 20080909
  Transmission Date: 20090109
  Serious: Yes (Hospitalization, Other)
  Sender: FDA-Public Use
  Company Number: WAES 0707GB00062

PATIENT
  Age: 7 Year
  Sex: Male

DRUGS (3)
  1. INDOCIN [Suspect]
     Indication: DRUG USE FOR UNKNOWN INDICATION
     Dosage: 25 MG, BID;
  2. IBUPROFEN [Suspect]
     Indication: DRUG USE FOR UNKNOWN INDICATION
     Dosage: 10 MG, KG, Q8H;
  3. DICLOFENAC SODIUM [Suspect]
     Indication: DRUG USE FOR UNKNOWN INDICATION
     Dosage: RECT
     Route: 054

REACTIONS (3)
  - DEHYDRATION [None]
  - PROCEDURAL VOMITING [None]
  - RENAL FAILURE ACUTE [None]
